FAERS Safety Report 21567601 (Version 1)
Quarter: 2022Q4

REPORT INFORMATION
  Report Type: Report from Study
  Country: MX (occurrence: MX)
  Receive Date: 20221108
  Receipt Date: 20221108
  Transmission Date: 20230113
  Serious: Yes (Other)
  Sender: FDA-Public Use
  Company Number: MX-002147023-NVSC2022MX171490

PATIENT
  Sex: Female

DRUGS (1)
  1. EXFORGE HCT [Suspect]
     Active Substance: AMLODIPINE BESYLATE\HYDROCHLOROTHIAZIDE\VALSARTAN
     Indication: Hypertension
     Dosage: 10/25/320 MG, 7 IN THE MORNING, (BY MOUTH)
     Route: 048
     Dates: start: 2022

REACTIONS (4)
  - Eye haemorrhage [Unknown]
  - Illness [Unknown]
  - Gait inability [Unknown]
  - Tachycardia [Unknown]
